FAERS Safety Report 17483270 (Version 2)
Quarter: 2020Q1

REPORT INFORMATION
  Report Type: Spontaneous
  Country: US (occurrence: US)
  Receive Date: 20200302
  Receipt Date: 20200313
  Transmission Date: 20200409
  Serious: No
  Sender: FDA-Public Use
  Company Number: US-TEVA-2020-US-1191329

PATIENT
  Age: 72 Year
  Sex: Male

DRUGS (1)
  1. CLONAZEPAM ACCORD [Suspect]
     Active Substance: CLONAZEPAM
     Route: 065
     Dates: end: 2018

REACTIONS (6)
  - Injury [Unknown]
  - Product substitution issue [Unknown]
  - Somnolence [Unknown]
  - Sleep disorder [Unknown]
  - Fall [Unknown]
  - Nightmare [Unknown]

NARRATIVE: CASE EVENT DATE: 2018
